FAERS Safety Report 25203240 (Version 3)
Quarter: 2025Q2

REPORT INFORMATION
  Report Type: Report from Study
  Country: TR (occurrence: TR)
  Receive Date: 20250416
  Receipt Date: 20250429
  Transmission Date: 20250716
  Serious: Yes (Hospitalization, Other)
  Sender: CELLTRION
  Company Number: TR-CELLTRION INC.-2025TR009814

PATIENT

DRUGS (10)
  1. INFLIXIMAB-DYYB [Suspect]
     Active Substance: INFLIXIMAB-DYYB
     Indication: Crohn^s disease
     Dosage: 120MG W6 SC (EVERY 2 WEEKS)
     Route: 058
     Dates: start: 20241030
  2. INFLIXIMAB-DYYB [Suspect]
     Active Substance: INFLIXIMAB-DYYB
     Dosage: 120MG W8 SC (EVERY 2 WEEKS)
     Route: 058
     Dates: start: 20241113
  3. INFLIXIMAB-DYYB [Suspect]
     Active Substance: INFLIXIMAB-DYYB
     Dosage: 120MG W10 SC (EVERY 2 WEEKS)
     Route: 058
     Dates: start: 20241127
  4. INFLIXIMAB [Suspect]
     Active Substance: INFLIXIMAB
     Indication: Crohn^s disease
     Dosage: 302 MG (PATIENT WEIGHS 60.4KG) W0 IV (EVERY 2 WEEKS)
     Route: 042
     Dates: start: 20240916
  5. INFLIXIMAB [Suspect]
     Active Substance: INFLIXIMAB
     Dosage: 302 MG (PATIENT WEIGHS 60.4KG) W2 IV (EVERY 2 WEEKS)
     Route: 042
     Dates: start: 20241002
  6. IMURAN [Concomitant]
     Active Substance: AZATHIOPRINE
     Indication: Crohn^s disease
     Route: 048
  7. BUDESONIDE [Concomitant]
     Active Substance: BUDESONIDE
     Indication: Crohn^s disease
     Route: 048
  8. ESOMEPRAZOLE [Concomitant]
     Active Substance: ESOMEPRAZOLE
     Route: 050
  9. ISONIAZID [Concomitant]
     Active Substance: ISONIAZID
     Indication: Interferon gamma release assay positive
     Dates: start: 20240719
  10. ISONIAZID [Concomitant]
     Active Substance: ISONIAZID
     Indication: Latent tuberculosis

REACTIONS (7)
  - Crohn^s disease [Recovering/Resolving]
  - Abscess [Recovering/Resolving]
  - Asthenia [Recovering/Resolving]
  - Diarrhoea [Recovering/Resolving]
  - Hypoaesthesia [Recovering/Resolving]
  - Gait disturbance [Recovering/Resolving]
  - Fatigue [Unknown]

NARRATIVE: CASE EVENT DATE: 20241127
